FAERS Safety Report 9762594 (Version 1)
Quarter: 2013Q4

REPORT INFORMATION
  Report Type: Spontaneous
  Country: US (occurrence: US)
  Receive Date: 20131216
  Receipt Date: 20131216
  Transmission Date: 20140711
  Serious: No
  Sender: FDA-Public Use
  Company Number: US-BIOGENIDEC-2013BI108765

PATIENT
  Age: 46 Year
  Sex: Female

DRUGS (6)
  1. TECFIDERA [Suspect]
     Indication: MULTIPLE SCLEROSIS
     Route: 048
     Dates: start: 20130907
  2. AMBIEN [Concomitant]
     Indication: INSOMNIA
     Route: 048
  3. AMRIX [Concomitant]
     Indication: MULTIPLE SCLEROSIS
     Route: 048
  4. LISINOPRIL [Concomitant]
     Route: 048
  5. PROVIGIL [Concomitant]
     Route: 048
  6. DITROPAN XL [Concomitant]
     Route: 048

REACTIONS (1)
  - Nausea [Not Recovered/Not Resolved]
